FAERS Safety Report 7060601-1 (Version None)
Quarter: 2010Q4

REPORT INFORMATION
  Report Type: 
  Country: None (occurrence: None)
  Receive Date: 20101025
  Receipt Date: 20101018
  Transmission Date: 20110411
  Serious: Yes (Hospitalization)
  Sender: FDA-Public Use
  Company Number: US-US-EMD SERONO, INC.-7009081

PATIENT
  Sex: Female
  Weight: 80 kg

DRUGS (24)
  1. REBIF [Suspect]
     Indication: MULTIPLE SCLEROSIS
     Route: 058
     Dates: start: 20100215
  2. METAMUCIL-2 [Concomitant]
  3. UNSPECIFIED MEDICATIONS [Concomitant]
  4. MULTI-VITAMIN [Concomitant]
  5. FISH OIL WITH OMEGA 3 AND 6 [Concomitant]
  6. CALCIUM WITH VITAMIN D [Concomitant]
  7. MIRELAN [Concomitant]
  8. TENORMIN [Concomitant]
  9. LEVOTHYROXINE [Concomitant]
  10. XANAX [Concomitant]
  11. METFORMIN [Concomitant]
  12. CELEXA [Concomitant]
  13. BENTYL [Concomitant]
  14. DONNATAL [Concomitant]
  15. AMBIEN [Concomitant]
  16. TRAZODONE [Concomitant]
  17. ROBAXIN [Concomitant]
  18. ZOMIG [Concomitant]
     Indication: MIGRAINE
  19. DEXODRINE [Concomitant]
  20. PILOCARPINE [Concomitant]
  21. NEURONTIN [Concomitant]
  22. LORTAB [Concomitant]
  23. DEXIUM [Concomitant]
  24. NAPROSYN [Concomitant]
     Indication: PAIN

REACTIONS (11)
  - ASTHENIA [None]
  - BALANCE DISORDER [None]
  - CONTUSION [None]
  - CYST [None]
  - DISEASE PROGRESSION [None]
  - DYSPNOEA [None]
  - FALL [None]
  - HEPATIC ENZYME INCREASED [None]
  - INJECTION SITE REACTION [None]
  - PAIN [None]
  - RIB FRACTURE [None]
